FAERS Safety Report 8329466-1 (Version None)
Quarter: 2012Q2

REPORT INFORMATION
  Report Type: 
  Country: None (occurrence: None)
  Receive Date: 20120502
  Receipt Date: 20120427
  Transmission Date: 20120825
  Serious: Yes (Hospitalization)
  Sender: FDA-Public Use
  Company Number: CA-ROCHE-1063857

PATIENT
  Age: 14 Year
  Sex: Male
  Weight: 48.124 kg

DRUGS (5)
  1. TAMIFLU [Suspect]
     Indication: PRODUCT USED FOR UNKNOWN INDICATION
     Route: 048
  2. TRIPROLIDINE HYDROCHLORIDE [Concomitant]
     Route: 065
  3. CODEINE [Concomitant]
     Route: 065
  4. GUAIFENESIN [Concomitant]
     Route: 065
  5. PSEUDOEPHEDRINE HCL [Concomitant]
     Route: 065

REACTIONS (5)
  - ABNORMAL BEHAVIOUR [None]
  - CATATONIA [None]
  - HYPOKINESIA [None]
  - SPEECH DISORDER [None]
  - URINARY INCONTINENCE [None]
